FAERS Safety Report 5068559-1 (Version None)
Quarter: 2006Q3

REPORT INFORMATION
  Report Type: 
  Country: None (occurrence: None)
  Receive Date: 20060802
  Receipt Date: 20051129
  Transmission Date: 20061208
  Serious: No
  Sender: FDA-Public Use
  Company Number: US-BRISTOL-MYERS SQUIBB COMPANY-13197322

PATIENT
  Age: 91 Year
  Sex: Female
  Weight: 54 kg

DRUGS (7)
  1. COUMADIN [Suspect]
     Indication: PROPHYLAXIS
     Dates: start: 20040405
  2. CARDIZEM [Concomitant]
  3. LASIX [Concomitant]
  4. DIGITEK [Concomitant]
  5. ONE-A-DAY [Concomitant]
  6. POTASSIUM [Concomitant]
  7. CALCIUM GLUCONATE [Concomitant]

REACTIONS (3)
  - CONFUSIONAL STATE [None]
  - HYPOTRICHOSIS [None]
  - TEMPERATURE INTOLERANCE [None]
